FAERS Safety Report 5370126-7 (Version None)
Quarter: 2007Q2

REPORT INFORMATION
  Report Type: 
  Country: None (occurrence: None)
  Receive Date: 20070626
  Receipt Date: 20070613
  Transmission Date: 20071010
  Serious: Yes (Other)
  Sender: FDA-Public Use
  Company Number: US-ELI_LILLY_AND_COMPANY-US200706003006

PATIENT
  Sex: Male

DRUGS (5)
  1. HUMALOG [Suspect]
     Dosage: 5 U, UNK
     Dates: start: 20050101
  2. HUMALOG [Suspect]
     Indication: DIABETES MELLITUS
     Dosage: 5 U, UNK
     Dates: start: 20050101
  3. HUMULIN N [Suspect]
     Indication: DIABETES MELLITUS
     Dates: end: 20050101
  4. HUMULIN R [Suspect]
     Indication: DIABETES MELLITUS
     Dates: end: 20050101
  5. LANTUS [Concomitant]
     Indication: DIABETES MELLITUS
     Dosage: 40 U, UNK

REACTIONS (6)
  - BLOOD GLUCOSE DECREASED [None]
  - BLOOD GLUCOSE INCREASED [None]
  - DRUG INEFFECTIVE [None]
  - EYE HAEMORRHAGE [None]
  - RETINOPATHY [None]
  - VISUAL DISTURBANCE [None]
